FAERS Safety Report 7166558-7 (Version None)
Quarter: 2010Q4

REPORT INFORMATION
  Report Type: 
  Country: None (occurrence: None)
  Receive Date: 20101216
  Receipt Date: 20101202
  Transmission Date: 20110411
  Serious: Yes (Hospitalization)
  Sender: FDA-Public Use
  Company Number: PHHY2010MX82181

PATIENT
  Age: 62 Year
  Sex: Female

DRUGS (1)
  1. RASILEZ [Suspect]
     Indication: HYPERTENSION
     Dosage: 300 MG, ONE TABLET, DAILY
     Route: 048
     Dates: start: 20090101

REACTIONS (2)
  - DYSURIA [None]
  - FACE OEDEMA [None]
